FAERS Safety Report 8956274 (Version 1)
Quarter: 2012Q4

REPORT INFORMATION
  Report Type: 
  Country: GB (occurrence: GB)
  Receive Date: 20121210
  Receipt Date: 20121210
  Transmission Date: 20130627
  Serious: Yes (Life-Threatening, Hospitalization)
  Sender: FDA-Public Use
  Company Number: GB-JNJFOC-20121114934

PATIENT
  Age: 25 Year
  Sex: Male

DRUGS (2)
  1. HALOPERIDOL DECANOATE [Suspect]
     Indication: PSYCHOTIC DISORDER
     Route: 030
     Dates: start: 20120713, end: 20121015
  2. PROCYCLIDINE [Concomitant]
     Indication: PRODUCT USED FOR UNKNOWN INDICATION
     Route: 048
     Dates: start: 201207, end: 20121015

REACTIONS (4)
  - Convulsion [Not Recovered/Not Resolved]
  - Renal injury [Not Recovered/Not Resolved]
  - Neuroleptic malignant syndrome [Not Recovered/Not Resolved]
  - Decubitus ulcer [Not Recovered/Not Resolved]
